FAERS Safety Report 5335032-2 (Version None)
Quarter: 2007Q2

REPORT INFORMATION
  Report Type: 
  Country: None (occurrence: None)
  Receive Date: 20070525
  Receipt Date: 20070516
  Transmission Date: 20071010
  Serious: Yes (Other)
  Sender: FDA-Public Use
  Company Number: US-GENENTECH-241614

PATIENT
  Sex: Male
  Weight: 88.889 kg

DRUGS (7)
  1. AVASTIN [Suspect]
     Indication: COLON CANCER METASTATIC
     Dosage: 425 MG, QOW
     Dates: start: 20061010
  2. FLUOROURACIL [Concomitant]
     Indication: COLON CANCER METASTATIC
  3. FOLINIC ACID [Concomitant]
     Indication: COLON CANCER METASTATIC
  4. OXALIPLATIN [Concomitant]
     Indication: COLON CANCER METASTATIC
  5. KEPPRA [Concomitant]
     Indication: DRUG USE FOR UNKNOWN INDICATION
  6. ZOFRAN [Concomitant]
     Indication: DRUG USE FOR UNKNOWN INDICATION
     Dosage: 8 MG, Q8H
  7. COMPAZINE [Concomitant]
     Indication: DRUG USE FOR UNKNOWN INDICATION
     Dosage: 10 MG, PRN

REACTIONS (1)
  - CONVULSION [None]
